FAERS Safety Report 13141024 (Version 1)
Quarter: 2017Q1

REPORT INFORMATION
  Report Type: Spontaneous
  Country: US (occurrence: US)
  Receive Date: 20170120
  Receipt Date: 20170120
  Transmission Date: 20170428
  Serious: Yes (Other)
  Sender: FDA-Public Use
  Company Number: None

PATIENT
  Age: 23 Year
  Sex: Female
  Weight: 63 kg

DRUGS (4)
  1. SERTRALINE [Suspect]
     Active Substance: SERTRALINE HYDROCHLORIDE
     Indication: OBSESSIVE-COMPULSIVE DISORDER
     Dosage: ?          QUANTITY:45 TABLET(S);?
     Route: 048
     Dates: start: 20160615, end: 20170119
  2. SAMBUCCUS (ELDERBERRY) [Concomitant]
  3. GUMMIES WITH ZINC [Concomitant]
  4. SERTRALINE [Suspect]
     Active Substance: SERTRALINE HYDROCHLORIDE
     Indication: POST-TRAUMATIC STRESS DISORDER
     Dosage: ?          QUANTITY:45 TABLET(S);?
     Route: 048
     Dates: start: 20160615, end: 20170119

REACTIONS (11)
  - Abnormal dreams [None]
  - Obsessive thoughts [None]
  - Nightmare [None]
  - Delusion [None]
  - Tachyphrenia [None]
  - Drug dose omission [None]
  - Product substitution issue [None]
  - Paranoia [None]
  - Anxiety [None]
  - Inappropriate schedule of drug administration [None]
  - Feeling abnormal [None]

NARRATIVE: CASE EVENT DATE: 20170120
